FAERS Safety Report 4339945-X (Version None)
Quarter: 2004Q2

REPORT INFORMATION
  Report Type: 
  Country: None (occurrence: None)
  Receive Date: 20040416
  Receipt Date: 20040407
  Transmission Date: 20050107
  Serious: Yes (Life-Threatening)
  Sender: FDA-Public Use
  Company Number: FR-GLAXOSMITHKLINE-B0329189A

PATIENT
  Age: 74 Year
  Sex: Female

DRUGS (4)
  1. VALACYCLOVIR HCL [Suspect]
     Dosage: 1UNIT PER DAY
     Route: 048
     Dates: start: 20030702, end: 20030901
  2. BACTRIM [Suspect]
     Dosage: 1UNIT PER DAY
     Route: 048
     Dates: start: 20030707, end: 20030901
  3. CYCLOPHOSPHAMIDE [Suspect]
     Dosage: 400MG PER DAY
     Route: 042
     Dates: start: 20030805, end: 20030805
  4. FLUDARA [Suspect]
     Dosage: 45UNIT CYCLIC
     Route: 042
     Dates: start: 20030703, end: 20030807

REACTIONS (3)
  - GENERAL PHYSICAL HEALTH DETERIORATION [None]
  - HAEMOLYTIC ANAEMIA [None]
  - THROMBOCYTOPENIA [None]
